FAERS Safety Report 4575527-2 (Version None)
Quarter: 2005Q1

REPORT INFORMATION
  Report Type: 
  Country: None (occurrence: None)
  Receive Date: 20050131
  Receipt Date: 20050131
  Transmission Date: 20050727
  Serious: Yes (Other)
  Sender: FDA-Public Use
  Company Number: None

PATIENT
  Sex: Female
  Weight: 87.0906 kg

DRUGS (3)
  1. OXYCODONE SR 80MG  TEVA PHARM [Suspect]
     Indication: OSTEOARTHRITIS
     Dosage: 80 MG (1 TAB)  PO BID
     Route: 048
  2. OXYCODONE SR 80MG  TEVA PHARM [Suspect]
     Indication: PAIN
     Dosage: 80 MG (1 TAB)  PO BID
     Route: 048
  3. OXYCODONE SR 80MG  TEVA PHARM [Suspect]
     Indication: SYSTEMIC LUPUS ERYTHEMATOSUS
     Dosage: 80 MG (1 TAB)  PO BID
     Route: 048

REACTIONS (8)
  - BARRETT'S OESOPHAGUS [None]
  - CONDITION AGGRAVATED [None]
  - DRUG INEFFECTIVE [None]
  - GASTROOESOPHAGEAL REFLUX DISEASE [None]
  - HIATUS HERNIA [None]
  - PHARMACEUTICAL PRODUCT COMPLAINT [None]
  - REACTION TO MEDICAL AGENT PRESERVATIVES [None]
  - VOMITING [None]
